FAERS Safety Report 13578163 (Version 2)
Quarter: 2017Q2

REPORT INFORMATION
  Report Type: Report from Study
  Country: JP (occurrence: JP)
  Receive Date: 20170524
  Receipt Date: 20170526
  Transmission Date: 20170830
  Serious: Yes (Other)
  Sender: FDA-Public Use
  Company Number: PHJP2017JP016403

PATIENT
  Age: 68 Year
  Sex: Female

DRUGS (15)
  1. BRONUCK [Concomitant]
     Active Substance: BROMFENAC SODIUM
     Indication: CATARACT
     Dosage: ADEQUATE DOSE
     Route: 047
  2. VENOGLOBULIN [Concomitant]
     Active Substance: HUMAN IMMUNOGLOBULIN G
     Indication: PRODUCT USED FOR UNKNOWN INDICATION
     Dosage: UNK ML, AT ODD INTERVALS
     Route: 065
  3. IRRADIATED RED BLOOD CELLS-LEUKOCYTES REDUCED [Concomitant]
     Active Substance: HUMAN RED BLOOD CELL
     Indication: PRODUCT USED FOR UNKNOWN INDICATION
     Dosage: UNK ML, UNK
     Route: 058
  4. LANSOPRAZOLE. [Concomitant]
     Active Substance: LANSOPRAZOLE
     Indication: PROPHYLAXIS
     Dosage: 15 MG, QD
     Route: 048
  5. AMLODIN [Concomitant]
     Active Substance: AMLODIPINE BESYLATE
     Indication: HYPERTENSION
     Dosage: 5 MG, QD
     Route: 048
  6. VALTREX [Concomitant]
     Active Substance: VALACYCLOVIR HYDROCHLORIDE
     Indication: PROPHYLAXIS
     Dosage: 500 MG, QD
     Route: 048
  7. MAGMITT [Concomitant]
     Active Substance: MAGNESIUM OXIDE
     Indication: PROPHYLAXIS
     Dosage: 990 MG, QD
     Route: 048
  8. OXYCONTIN [Suspect]
     Active Substance: OXYCODONE HYDROCHLORIDE
     Indication: PRODUCT USED FOR UNKNOWN INDICATION
     Dosage: 40 MG, QD
     Route: 048
  9. OXINORM [Concomitant]
     Active Substance: OXYCODONE HYDROCHLORIDE
     Indication: PRODUCT USED FOR UNKNOWN INDICATION
     Dosage: UNK MG, PRN
     Route: 048
  10. VELCADE [Concomitant]
     Active Substance: BORTEZOMIB
     Indication: PLASMA CELL MYELOMA
     Dosage: 1 MG/KG, QW (ONCE IN WEEK 1 AND ONCE IN WEEK 2)
     Route: 062
     Dates: start: 20160627, end: 20160829
  11. LENADEX [Concomitant]
     Active Substance: DEXAMETHASONE ACETATE
     Indication: PLASMA CELL MYELOMA
     Dosage: UNK UNK, QW2
     Route: 048
     Dates: start: 20160627, end: 20160830
  12. HYALEIN [Concomitant]
     Active Substance: HYALURONATE SODIUM
     Indication: CATARACT
     Dosage: ADEQUATE DOSE
     Route: 047
  13. CALONAL [Concomitant]
     Active Substance: ACETAMINOPHEN
     Indication: PRODUCT USED FOR UNKNOWN INDICATION
     Dosage: UNK MG, PRN
     Route: 048
     Dates: start: 20160821
  14. BAKTAR [Concomitant]
     Active Substance: SULFAMETHOXAZOLE\TRIMETHOPRIM
     Indication: PROPHYLAXIS
     Dosage: 1 DF, QD
     Route: 048
     Dates: end: 20160824
  15. FARYDAK [Suspect]
     Active Substance: PANOBINOSTAT
     Indication: PLASMA CELL MYELOMA
     Dosage: 20 MG, QD (4 ADMINISTRATIONS PER CYCLE)
     Route: 048
     Dates: start: 20160627, end: 20160918

REACTIONS (8)
  - Blood creatinine increased [Not Recovered/Not Resolved]
  - Nausea [Recovering/Resolving]
  - Hypokalaemia [Recovering/Resolving]
  - Constipation [Recovering/Resolving]
  - White blood cell count decreased [Recovering/Resolving]
  - Deep vein thrombosis [Recovering/Resolving]
  - Haemoglobin decreased [Unknown]
  - Platelet count decreased [Not Recovered/Not Resolved]

NARRATIVE: CASE EVENT DATE: 20160630
